FAERS Safety Report 13186591 (Version 2)
Quarter: 2018Q1

REPORT INFORMATION
  Report Type: Spontaneous
  Country: US (occurrence: US)
  Receive Date: 20170205
  Receipt Date: 20180213
  Transmission Date: 20180508
  Serious: No
  Sender: FDA-Public Use
  Company Number: US-ENDO PHARMACEUTICALS INC-2016SCPR015713

PATIENT

DRUGS (3)
  1. CABERGOLINE. [Suspect]
     Active Substance: CABERGOLINE
     Dosage: HALF TABLET, BIWEEKLY
     Route: 048
  2. CABERGOLINE. [Suspect]
     Active Substance: CABERGOLINE
     Indication: PROLACTIN-PRODUCING PITUITARY TUMOUR
     Dosage: HALF TABLET, BIWEEKLY
     Route: 048
     Dates: start: 201607
  3. CABERGOLINE. [Suspect]
     Active Substance: CABERGOLINE
     Dosage: HALF TABLET, BIWEEKLY
     Route: 048

REACTIONS (4)
  - Product quality issue [Unknown]
  - Drug dispensing error [Unknown]
  - Poor quality drug administered [Unknown]
  - Drug ineffective [Unknown]

NARRATIVE: CASE EVENT DATE: 2016
